FAERS Safety Report 16204737 (Version 3)
Quarter: 2020Q2

REPORT INFORMATION
  Report Type: Spontaneous
  Country: US (occurrence: US)
  Receive Date: 20190416
  Receipt Date: 20200406
  Transmission Date: 20200713
  Serious: Yes (Other)
  Sender: FDA-Public Use
  Company Number: PHEH2019US016229

PATIENT
  Age: 61 Year
  Sex: Female

DRUGS (2)
  1. COSENTYX [Suspect]
     Active Substance: SECUKINUMAB
     Indication: PSORIASIS
     Dosage: 300 MG, QW (ONCE A WEEK FOR 5 WEEKS)
     Route: 058
     Dates: start: 20190403
  2. COSENTYX [Suspect]
     Active Substance: SECUKINUMAB
     Indication: PSORIASIS
     Dosage: 300 MG, QMO (ONCE EVERY 4 WEEKS)
     Route: 058

REACTIONS (3)
  - Cellulitis [Recovered/Resolved]
  - Skin fissures [Unknown]
  - Cellulitis [Unknown]

NARRATIVE: CASE EVENT DATE: 20190406
